FAERS Safety Report 16321987 (Version 2)
Quarter: 2019Q2

REPORT INFORMATION
  Report Type: Report from Study
  Country: US (occurrence: US)
  Receive Date: 20190516
  Receipt Date: 20190529
  Transmission Date: 20190711
  Serious: Yes (Hospitalization, Other)
  Sender: FDA-Public Use
  Company Number: US-GILEAD-2019-0408354

PATIENT
  Age: 15 Year
  Sex: Male
  Weight: 29 kg

DRUGS (26)
  1. AMBRISENTAN [Suspect]
     Active Substance: AMBRISENTAN
     Indication: GASTROOESOPHAGEAL REFLUX DISEASE
  2. CALTRATE D [CALCIUM;COLECALCIFEROL] [Concomitant]
  3. XOPENEX [Concomitant]
     Active Substance: LEVALBUTEROL HYDROCHLORIDE
  4. ADCIRCA [Concomitant]
     Active Substance: TADALAFIL
  5. AMBRISENTAN [Suspect]
     Active Substance: AMBRISENTAN
     Indication: SLEEP APNOEA SYNDROME
  6. CATAPRES [Concomitant]
     Active Substance: CLONIDINE HYDROCHLORIDE
  7. KEPPRA [Concomitant]
     Active Substance: LEVETIRACETAM
  8. BANZEL [Concomitant]
     Active Substance: RUFINAMIDE
  9. VIMPAT [Concomitant]
     Active Substance: LACOSAMIDE
  10. CEFDINIR. [Concomitant]
     Active Substance: CEFDINIR
  11. ATROVENT [Concomitant]
     Active Substance: IPRATROPIUM BROMIDE
  12. IBUPROFEN. [Concomitant]
     Active Substance: IBUPROFEN
  13. OCEAN SALINE NASAL SPRAY [Concomitant]
     Active Substance: SODIUM CHLORIDE
  14. AMBRISENTAN [Suspect]
     Active Substance: AMBRISENTAN
     Indication: TRISOMY 21
  15. MYCOSTATIN [Concomitant]
     Active Substance: NYSTATIN
  16. DULERA [Concomitant]
     Active Substance: FORMOTEROL FUMARATE DIHYDRATE\MOMETASONE FUROATE
  17. CARNITOR [Concomitant]
     Active Substance: LEVOCARNITINE
  18. LUMINAL [PHENOBARBITAL] [Concomitant]
  19. CIPRODEX [Concomitant]
     Active Substance: CIPROFLOXACIN HYDROCHLORIDE\DEXAMETHASONE
  20. BECLOMETHASONE DIPROPIONATE [BECLOMETASONE] [Concomitant]
  21. CHOLECALCIFEROL [Concomitant]
     Active Substance: CHOLECALCIFEROL
  22. AMBRISENTAN [Suspect]
     Active Substance: AMBRISENTAN
     Indication: ASPIRATION
  23. NASONEX [Concomitant]
     Active Substance: MOMETASONE FUROATE
  24. AMBRISENTAN [Suspect]
     Active Substance: AMBRISENTAN
     Indication: PULMONARY ARTERIAL HYPERTENSION
     Dosage: 5 MG, QD
     Route: 033
     Dates: start: 201612
  25. LEVAQUIN [Concomitant]
     Active Substance: LEVOFLOXACIN
  26. LORATADIN [Concomitant]
     Active Substance: LORATADINE

REACTIONS (1)
  - Pneumonia [Recovered/Resolved]

NARRATIVE: CASE EVENT DATE: 20190509
